FAERS Safety Report 7732126-9 (Version None)
Quarter: 2011Q3

REPORT INFORMATION
  Report Type: 
  Country: None (occurrence: None)
  Receive Date: 20110906
  Receipt Date: 20110817
  Transmission Date: 20111222
  Serious: Yes (Other)
  Sender: FDA-Public Use
  Company Number: US-BAXTER-2011BH020626

PATIENT
  Sex: Male

DRUGS (2)
  1. ANTICOAGULANT THERAPY [Suspect]
     Indication: HEART TRANSPLANT
  2. DIANEAL [Suspect]
     Indication: PERITONEAL DIALYSIS
     Route: 033
     Dates: end: 20110101

REACTIONS (1)
  - INTRA-ABDOMINAL HAEMORRHAGE [None]
